FAERS Safety Report 6201486-2 (Version None)
Quarter: 2009Q2

REPORT INFORMATION
  Report Type: 
  Country: None (occurrence: None)
  Receive Date: 20090519
  Receipt Date: 20090504
  Transmission Date: 20091009
  Serious: Yes (Hospitalization)
  Sender: FDA-Public Use
  Company Number: 2009S1007730

PATIENT
  Age: 5 Year
  Sex: Male

DRUGS (9)
  1. METHOTREXATE [Suspect]
     Indication: LEUKAEMIA RECURRENT PROPHYLAXIS
     Dosage: 12.5 MG; INTRATHECAL; 3000 MG/M**2; INTRAVENOUS
     Route: 037
  2. VINCRISTINE [Concomitant]
  3. PREDNISONE [Concomitant]
  4. ASPARAGINASE [Concomitant]
  5. MERCAPTOPURINE [Concomitant]
  6. CYTARABINE [Concomitant]
  7. CYCLOPHOSPHAMIDE [Concomitant]
  8. CALCIUM FOLINATE [Concomitant]
  9. HYDROCORTISONE [Concomitant]

REACTIONS (8)
  - AMNESIA [None]
  - APHASIA [None]
  - CEREBROSCLEROSIS [None]
  - EUPHORIC MOOD [None]
  - GRAND MAL CONVULSION [None]
  - LEUKOENCEPHALOPATHY [None]
  - LOSS OF CONSCIOUSNESS [None]
  - RESPIRATORY ARREST [None]
